FAERS Safety Report 4501162-8 (Version None)
Quarter: 2004Q4

REPORT INFORMATION
  Report Type: 
  Country: None (occurrence: None)
  Receive Date: 20041109
  Receipt Date: 20041026
  Transmission Date: 20050328
  Serious: Yes (Life-Threatening, Hospitalization)
  Sender: FDA-Public Use
  Company Number: FR_040804644

PATIENT
  Age: 77 Year
  Sex: Male
  Weight: 57 kg

DRUGS (7)
  1. GEMZAR [Suspect]
     Indication: BLADDER CANCER
     Dosage: 1000 MG/M2/3 OTHER
     Dates: start: 20040630, end: 20040804
  2. ASPIRIN [Concomitant]
  3. STATINE [Concomitant]
  4. DI-ANTALVIC [Concomitant]
  5. ALDALIX [Concomitant]
  6. MOTILIUM (DOMPERIDONE MALEATE) [Concomitant]
  7. ENDOTELON [Concomitant]

REACTIONS (6)
  - ELECTROCARDIOGRAM QT PROLONGED [None]
  - PULMONARY CONGESTION [None]
  - SYNCOPE [None]
  - TORSADE DE POINTES [None]
  - VENTRICULAR HYPERTROPHY [None]
  - VENTRICULAR TACHYCARDIA [None]
